FAERS Safety Report 8112858-3 (Version None)
Quarter: 2012Q1

REPORT INFORMATION
  Report Type: 
  Country: None (occurrence: None)
  Receive Date: 20120203
  Receipt Date: 20120127
  Transmission Date: 20120608
  Serious: Yes (Hospitalization)
  Sender: FDA-Public Use
  Company Number: GR-ABBOTT-12P-066-0898733-00

PATIENT
  Age: 68 Year
  Sex: Male
  Weight: 91 kg

DRUGS (8)
  1. ATENOLOL [Concomitant]
     Indication: HYPERTENSION
     Route: 048
     Dates: start: 20090101
  2. ATORVASTATIN [Concomitant]
     Indication: HYPERLIPIDAEMIA
     Route: 048
     Dates: start: 20090101
  3. FUROSEMIDE [Concomitant]
     Indication: OEDEMA
     Route: 042
     Dates: start: 20100317, end: 20100322
  4. CACO3 (CALCIUM CARBONATE) [Concomitant]
     Indication: HYPERPARATHYROIDISM SECONDARY
     Route: 048
     Dates: start: 20090101
  5. ZEMPLAR [Suspect]
     Indication: HYPERPARATHYROIDISM SECONDARY
     Route: 048
     Dates: start: 20090702, end: 20100114
  6. LANTHANUM CARBONATE [Concomitant]
     Indication: HYPERPARATHYROIDISM SECONDARY
     Dosage: 2 TWICE DAILY
     Route: 048
     Dates: start: 20090101
  7. DARBEPOETIN [Concomitant]
     Indication: ANAEMIA
     Route: 058
     Dates: start: 20090101
  8. AMLODIPINE [Concomitant]
     Indication: HYPERTENSION
     Dosage: 10MG IN THE MORNING, 5MG AT NIGHT
     Route: 048
     Dates: start: 20090101

REACTIONS (2)
  - PYREXIA [None]
  - PNEUMONIA [None]
